FAERS Safety Report 20685442 (Version 1)
Quarter: 2022Q2

REPORT INFORMATION
  Report Type: Report from Study
  Country: JP (occurrence: JP)
  Receive Date: 20220407
  Receipt Date: 20220407
  Transmission Date: 20220720
  Serious: Yes (Other)
  Sender: FDA-Public Use
  Company Number: JP-ViiV Healthcare Limited-JP2022GSK060372

PATIENT
  Sex: Male

DRUGS (1)
  1. DOLUTEGRAVIR [Suspect]
     Active Substance: DOLUTEGRAVIR
     Indication: Antiretroviral therapy
     Dosage: UNK

REACTIONS (2)
  - Immune reconstitution inflammatory syndrome [Unknown]
  - Hepatitis B [Recovered/Resolved]
